FAERS Safety Report 7670237-7 (Version None)
Quarter: 2011Q3

REPORT INFORMATION
  Report Type: 
  Country: None (occurrence: None)
  Receive Date: 20110808
  Receipt Date: 20110727
  Transmission Date: 20111222
  Serious: Yes (Other)
  Sender: FDA-Public Use
  Company Number: AT-AMGEN-AUTSP2011038260

PATIENT
  Age: 67 Year
  Sex: Female

DRUGS (2)
  1. PROLIA [Suspect]
     Indication: OSTEOPOROSIS POSTMENOPAUSAL
     Dosage: UNK
     Dates: start: 20110607
  2. B-KOMPLEX [Concomitant]
     Indication: MUSCULOSKELETAL PAIN
     Route: 041

REACTIONS (11)
  - DYSGEUSIA [None]
  - CONSTIPATION [None]
  - DIARRHOEA [None]
  - CARDIAC DISORDER [None]
  - ACTIVITIES OF DAILY LIVING IMPAIRED [None]
  - HYPERTENSION [None]
  - MICTURITION URGENCY [None]
  - MALAISE [None]
  - INFLUENZA LIKE ILLNESS [None]
  - ACUTE PHASE REACTION [None]
  - BLOOD PRESSURE FLUCTUATION [None]
